FAERS Safety Report 5801156-6 (Version None)
Quarter: 2008Q3

REPORT INFORMATION
  Report Type: 
  Country: None (occurrence: None)
  Receive Date: 20080707
  Receipt Date: 20080701
  Transmission Date: 20090109
  Serious: Yes (Disabling)
  Sender: FDA-Public Use
  Company Number: PHEH2008US05180

PATIENT
  Sex: Male

DRUGS (1)
  1. TRILEPTAL [Suspect]
     Indication: AFFECTIVE DISORDER
     Dosage: 750 MG, BID
     Route: 048

REACTIONS (2)
  - REPRODUCTIVE TRACT DISORDER [None]
  - SPERMATOZOA PROGRESSIVE MOTILITY DECREASED [None]
